FAERS Safety Report 15989153 (Version 1)
Quarter: 2019Q1

REPORT INFORMATION
  Report Type: Spontaneous
  Country: NL (occurrence: NL)
  Receive Date: 20190221
  Receipt Date: 20190221
  Transmission Date: 20190418
  Serious: Yes (Hospitalization)
  Sender: FDA-Public Use
  Company Number: NL-ACCORD-108459

PATIENT
  Age: 37 Year
  Sex: Male

DRUGS (2)
  1. ARIPIPRAZOLE. [Suspect]
     Active Substance: ARIPIPRAZOLE
     Indication: BIPOLAR I DISORDER
     Dosage: 1 X DAILY 1 TABLET
     Dates: start: 20180622, end: 20180622
  2. QUETIAPINE/QUETIAPINE FUMARATE [Concomitant]
     Dosage: 100, 200 AND 300 MG

REACTIONS (3)
  - Feeling hot [Recovering/Resolving]
  - Musculoskeletal discomfort [Recovering/Resolving]
  - Feeling jittery [Recovering/Resolving]

NARRATIVE: CASE EVENT DATE: 20180710
